FAERS Safety Report 21741031 (Version 1)
Quarter: 2022Q4

REPORT INFORMATION
  Report Type: Spontaneous
  Country: US (occurrence: US)
  Receive Date: 20221216
  Receipt Date: 20221216
  Transmission Date: 20230112
  Serious: No
  Sender: FDA-Public Use
  Company Number: US-AVEO ONCOLOGY-2022-AVEO-US000478

PATIENT

DRUGS (3)
  1. FOTIVDA [Suspect]
     Active Substance: TIVOZANIB HYDROCHLORIDE
     Indication: Renal cell carcinoma
     Dosage: 1.34 MG, DAILY FOR 21 DAYS WITH 7 DAYS OFF (28-DAY CYCLE)
     Route: 048
     Dates: start: 20221017, end: 20221106
  2. FOTIVDA [Suspect]
     Active Substance: TIVOZANIB HYDROCHLORIDE
     Dosage: 1.34 MG, DAILY FOR 21 DAYS WITH 7 DAYS OFF (28-DAY CYCLE)
     Route: 048
     Dates: start: 2022
  3. XGEVA [Concomitant]
     Active Substance: DENOSUMAB
     Dosage: EVERY OTHER WEEK

REACTIONS (12)
  - Blood pressure increased [Recovered/Resolved]
  - Decreased appetite [Unknown]
  - Bone density abnormal [Unknown]
  - Asthenia [Recovering/Resolving]
  - Dysstasia [Recovered/Resolved]
  - Tremor [Unknown]
  - Arthralgia [Unknown]
  - Aphonia [Unknown]
  - Taste disorder [Unknown]
  - Walking aid user [Unknown]
  - Loss of personal independence in daily activities [Recovered/Resolved]
  - Adverse drug reaction [Unknown]

NARRATIVE: CASE EVENT DATE: 20220101
